FAERS Safety Report 9644700 (Version 1)
Quarter: 2013Q4

REPORT INFORMATION
  Report Type: Report from Study
  Country: BR (occurrence: BR)
  Receive Date: 20131025
  Receipt Date: 20131025
  Transmission Date: 20140711
  Serious: Yes (Other)
  Sender: FDA-Public Use
  Company Number: BR-ROCHE-1293834

PATIENT
  Sex: Male
  Weight: 98 kg

DRUGS (10)
  1. XOLAIR [Suspect]
     Indication: ASTHMA
     Route: 065
     Dates: start: 2011
  2. XOLAIR [Suspect]
     Indication: BLOOD IMMUNOGLOBULIN E INCREASED
  3. FOSTAIR [Concomitant]
  4. SPIRIVA [Concomitant]
  5. PREDNISONE [Concomitant]
  6. FORASEQ (BRAZIL) [Concomitant]
  7. SINGULAIR [Concomitant]
  8. ALENIA (BRAZIL) [Concomitant]
     Dosage: 12/400
     Route: 065
  9. BEROTEC [Concomitant]
  10. LOSARTAN [Concomitant]

REACTIONS (18)
  - Generalised oedema [Not Recovered/Not Resolved]
  - Anal injury [Recovering/Resolving]
  - Ageusia [Recovering/Resolving]
  - Dyspnoea [Not Recovered/Not Resolved]
  - Abdominal pain [Not Recovered/Not Resolved]
  - Vision blurred [Not Recovered/Not Resolved]
  - Headache [Not Recovered/Not Resolved]
  - Acne [Not Recovered/Not Resolved]
  - Bone pain [Not Recovered/Not Resolved]
  - Mouth ulceration [Not Recovered/Not Resolved]
  - Diarrhoea [Not Recovered/Not Resolved]
  - Arthralgia [Not Recovered/Not Resolved]
  - Dizziness postural [Not Recovered/Not Resolved]
  - Blood pressure increased [Not Recovered/Not Resolved]
  - Throat irritation [Not Recovered/Not Resolved]
  - Product quality issue [Unknown]
  - Incorrect route of drug administration [Unknown]
  - Drug ineffective [Unknown]
